FAERS Safety Report 6765514-8 (Version None)
Quarter: 2010Q2

REPORT INFORMATION
  Report Type: 
  Country: None (occurrence: None)
  Receive Date: 20100609
  Receipt Date: 20100525
  Transmission Date: 20101027
  Serious: Yes (Other)
  Sender: FDA-Public Use
  Company Number: AUR-APL-2010-01410

PATIENT
  Age: 67 Year
  Sex: Male

DRUGS (2)
  1. ONDANSETRON [Suspect]
     Indication: NAUSEA
     Dosage: 4MG - Q6 HR - IV
     Route: 042
  2. ONDANSETRON [Suspect]
     Indication: VOMITING
     Dosage: 4MG - Q6 HR - IV
     Route: 042

REACTIONS (4)
  - DIPLOPIA [None]
  - FLUSHING [None]
  - INTRAVENTRICULAR HAEMORRHAGE [None]
  - WITHDRAWAL SYNDROME [None]
